FAERS Safety Report 4881611-6 (Version None)
Quarter: 2006Q1

REPORT INFORMATION
  Report Type: 
  Country: None (occurrence: None)
  Receive Date: 20060116
  Receipt Date: 20051208
  Transmission Date: 20060701
  Serious: Yes (Death, Life-Threatening, Other)
  Sender: FDA-Public Use
  Company Number: JP-BRACCO-BRO-009652

PATIENT
  Sex: Female
  Weight: 59 kg

DRUGS (5)
  1. IOPAMIRON [Suspect]
     Indication: ANGINA PECTORIS
     Dosage: 10 ML/ONCE
     Route: 022
     Dates: start: 20051201, end: 20051201
  2. IOPAMIRON [Suspect]
     Indication: ARTERIOGRAM CORONARY
     Dosage: 10 ML/ONCE
     Route: 022
     Dates: start: 20051201, end: 20051201
  3. PANALDINE [Suspect]
     Route: 048
     Dates: start: 20051202, end: 20051202
  4. MEXITIL [Concomitant]
     Route: 042
     Dates: end: 20051202
  5. HEPARIN [Concomitant]
     Route: 042
     Dates: end: 20051202

REACTIONS (3)
  - PNEUMONIA [None]
  - PULMONARY EMBOLISM [None]
  - RENAL FAILURE [None]
